FAERS Safety Report 15368209 (Version 1)
Quarter: 2018Q3

REPORT INFORMATION
  Report Type: Report from Study
  Country: None (occurrence: JP)
  Receive Date: 20180910
  Receipt Date: 20180910
  Transmission Date: 20181010
  Serious: Yes (Disabling)
  Sender: FDA-Public Use
  Company Number: JP-BAUSCH-2012VX005497

PATIENT
  Age: 74 Year
  Sex: Male

DRUGS (29)
  1. VISUDYNE [Suspect]
     Active Substance: VERTEPORFIN
     Route: 042
     Dates: start: 20110328
  2. VISUDYNE [Suspect]
     Active Substance: VERTEPORFIN
     Route: 042
     Dates: start: 20100308, end: 20100308
  3. LUCENTIS [Suspect]
     Active Substance: RANIBIZUMAB
     Dosage: INTRAVITREAL IN
     Route: 031
     Dates: start: 20091203
  4. LUCENTIS [Suspect]
     Active Substance: RANIBIZUMAB
     Dosage: INTRAVITREAL IN
     Route: 031
     Dates: start: 20091203
  5. LUCENTIS [Suspect]
     Active Substance: RANIBIZUMAB
     Dosage: INTRAVITREAL IN
     Route: 031
     Dates: start: 20090903
  6. LUCENTIS [Suspect]
     Active Substance: RANIBIZUMAB
     Dosage: INTRAVITREAL IN
     Route: 031
     Dates: start: 20090708
  7. VISUDYNE [Suspect]
     Active Substance: VERTEPORFIN
     Indication: POLYPOIDAL CHOROIDAL VASCULOPATHY
     Route: 042
     Dates: start: 20090615
  8. VISUDYNE [Suspect]
     Active Substance: VERTEPORFIN
     Indication: AGE-RELATED MACULAR DEGENERATION
     Route: 042
     Dates: start: 20100308
  9. LUCENTIS [Suspect]
     Active Substance: RANIBIZUMAB
     Indication: POLYPOIDAL CHOROIDAL VASCULOPATHY
     Dosage: INTRAVITREAL IN
     Route: 031
     Dates: start: 20090610
  10. LUCENTIS [Suspect]
     Active Substance: RANIBIZUMAB
     Dosage: INTRAVITREAL IN
     Route: 031
     Dates: start: 20091104
  11. LUCENTIS [Suspect]
     Active Substance: RANIBIZUMAB
     Dosage: INTRAVITREAL IN
     Route: 031
     Dates: start: 20100107
  12. LUCENTIS [Suspect]
     Active Substance: RANIBIZUMAB
     Dosage: INTRAVITREAL IN
     Route: 031
     Dates: start: 20110324
  13. LUCENTIS [Suspect]
     Active Substance: RANIBIZUMAB
     Dosage: INTRAVITREAL IN
     Route: 031
     Dates: start: 20100527
  14. LUCENTIS [Suspect]
     Active Substance: RANIBIZUMAB
     Dosage: INTRAVITREAL IN
     Route: 031
     Dates: start: 20090610
  15. LUCENTIS [Suspect]
     Active Substance: RANIBIZUMAB
     Dosage: INTRAVITREAL IN
     Route: 031
     Dates: start: 20100527
  16. LUCENTIS [Suspect]
     Active Substance: RANIBIZUMAB
     Dosage: INTRAVITREAL IN
     Route: 031
     Dates: start: 20110324
  17. LUCENTIS [Suspect]
     Active Substance: RANIBIZUMAB
     Dosage: INTRAVITREAL IN
     Route: 031
     Dates: start: 20090903
  18. VISUDYNE [Suspect]
     Active Substance: VERTEPORFIN
     Route: 042
     Dates: start: 20090615, end: 20090615
  19. LUCENTIS [Suspect]
     Active Substance: RANIBIZUMAB
     Dosage: INTRAVITREAL IN
     Route: 031
     Dates: start: 20090803
  20. LUCENTIS [Suspect]
     Active Substance: RANIBIZUMAB
     Dosage: INTRAVITREAL IN
     Route: 031
     Dates: start: 20100218
  21. LUCENTIS [Suspect]
     Active Substance: RANIBIZUMAB
     Dosage: INTRAVITREAL IN
     Route: 031
     Dates: start: 20091104
  22. VEGAMOX [Concomitant]
     Active Substance: MOXIFLOXACIN HYDROCHLORIDE
     Indication: PRODUCT USED FOR UNKNOWN INDICATION
     Route: 065
     Dates: start: 200906, end: 201103
  23. LUCENTIS [Suspect]
     Active Substance: RANIBIZUMAB
     Dosage: INTRAVITREAL IN
     Route: 031
     Dates: start: 20090803
  24. VISUDYNE [Suspect]
     Active Substance: VERTEPORFIN
     Route: 042
     Dates: start: 20110328, end: 20110328
  25. LUCENTIS [Suspect]
     Active Substance: RANIBIZUMAB
     Dosage: INTRAVITREAL IN
     Route: 031
     Dates: start: 20090708
  26. LUCENTIS [Suspect]
     Active Substance: RANIBIZUMAB
     Dosage: INTRAVITREAL IN
     Route: 031
     Dates: start: 20100818
  27. LUCENTIS [Suspect]
     Active Substance: RANIBIZUMAB
     Dosage: INTRAVITREAL IN
     Route: 031
     Dates: start: 20090107
  28. LUCENTIS [Suspect]
     Active Substance: RANIBIZUMAB
     Dosage: INTRAVITREAL IN
     Route: 031
     Dates: start: 20100218
  29. LUCENTIS [Suspect]
     Active Substance: RANIBIZUMAB
     Dosage: INTRAVITREAL IN
     Route: 031
     Dates: start: 20100818

REACTIONS (3)
  - Retinal haemorrhage [Recovering/Resolving]
  - Disease recurrence [Recovering/Resolving]
  - Inappropriate schedule of drug administration [Recovering/Resolving]

NARRATIVE: CASE EVENT DATE: 20091031
